FAERS Safety Report 9924180 (Version 5)
Quarter: 2014Q2

REPORT INFORMATION
  Report Type: Report from Study
  Country: US (occurrence: US)
  Receive Date: 20140226
  Receipt Date: 20140627
  Transmission Date: 20141212
  Serious: Yes (Hospitalization)
  Sender: FDA-Public Use
  Company Number: US-BIOGENIDEC-2014BI017071

PATIENT
  Age: 58 Year
  Sex: Female

DRUGS (15)
  1. TECFIDERA [Suspect]
     Indication: MULTIPLE SCLEROSIS
     Route: 048
     Dates: start: 20131017
  2. TECFIDERA [Suspect]
     Indication: MULTIPLE SCLEROSIS
     Route: 048
     Dates: start: 20131024
  3. ASPIRIN [Concomitant]
  4. WELLBUTRIN XL [Concomitant]
  5. DESOWEN [Concomitant]
  6. BENADRYL [Concomitant]
  7. NORCO [Concomitant]
  8. PRILOSEC [Concomitant]
     Indication: PRODUCT USED FOR UNKNOWN INDICATION
  9. ZOFRAN [Concomitant]
  10. ROXICODONE [Concomitant]
     Indication: PRODUCT USED FOR UNKNOWN INDICATION
  11. MIRAPEX [Concomitant]
     Indication: PRODUCT USED FOR UNKNOWN INDICATION
  12. PROAIR HFA 108 [Concomitant]
  13. ZANAFLEX [Concomitant]
     Indication: PRODUCT USED FOR UNKNOWN INDICATION
  14. KENALOG [Concomitant]
  15. LOPERAMIDE [Concomitant]

REACTIONS (12)
  - Nephrolithiasis [Not Recovered/Not Resolved]
  - Retinal tear [Not Recovered/Not Resolved]
  - Gastrointestinal disorder [Recovered/Resolved]
  - Pruritus [Not Recovered/Not Resolved]
  - Irritability [Unknown]
  - Fatigue [Unknown]
  - Dysuria [Unknown]
  - Diarrhoea [Not Recovered/Not Resolved]
  - Flushing [Unknown]
  - Pyrexia [Unknown]
  - Herpes zoster [Unknown]
  - Alopecia [Unknown]
